FAERS Safety Report 7744085-3 (Version None)
Quarter: 2011Q3

REPORT INFORMATION
  Report Type: 
  Country: None (occurrence: None)
  Receive Date: 20110912
  Receipt Date: 20110829
  Transmission Date: 20111222
  Serious: Yes (Hospitalization)
  Sender: FDA-Public Use
  Company Number: US-CELGENEUS-163-21880-11083477

PATIENT
  Age: 66 Year
  Sex: Female

DRUGS (14)
  1. NORTRIPTYLINE HCL [Concomitant]
     Route: 065
  2. ROPINIROLE [Concomitant]
     Route: 065
  3. GABAPENTIN [Concomitant]
     Route: 065
  4. REVLIMID [Suspect]
     Dosage: 10 MILLIGRAM
     Route: 048
     Dates: start: 20101201
  5. HYDROCODONE BITARTRATE AND ACETAMINOPHEN [Concomitant]
     Route: 065
  6. LISINOPRIL [Concomitant]
     Route: 065
  7. DULOXETIME HYDROCHLORIDE [Concomitant]
     Route: 065
  8. CARVEDILOL [Concomitant]
     Route: 065
  9. FLUTICASONE PROPIONATE [Concomitant]
     Route: 065
  10. CLONAZEPAM [Concomitant]
     Route: 065
  11. FAMOTIDINE [Concomitant]
     Route: 065
  12. REVLIMID [Suspect]
     Dosage: 5 MILLIGRAM
     Route: 048
     Dates: start: 20110101
  13. RALOXIFENE HCL [Concomitant]
     Route: 065
  14. FUROSEMIDE [Concomitant]
     Route: 065

REACTIONS (3)
  - ATRIOVENTRICULAR BLOCK FIRST DEGREE [None]
  - VENTRICULAR EXTRASYSTOLES [None]
  - ATRIOVENTRICULAR BLOCK SECOND DEGREE [None]
